FAERS Safety Report 6329617-4 (Version None)
Quarter: 2009Q3

REPORT INFORMATION
  Report Type: 
  Country: None (occurrence: None)
  Receive Date: 20090826
  Receipt Date: 20090817
  Transmission Date: 20100115
  Serious: Yes (Death)
  Sender: FDA-Public Use
  Company Number: NO-GENENTECH-288780

PATIENT
  Sex: Male
  Weight: 78 kg

DRUGS (2)
  1. ACTIVASE [Suspect]
     Indication: THROMBOLYSIS
     Dosage: 70 MG, UNK
     Route: 042
     Dates: start: 20090802, end: 20090802
  2. ALBYL-E [Concomitant]
     Indication: DRUG USE FOR UNKNOWN INDICATION
     Dosage: UNK
     Route: 048
     Dates: end: 20090802

REACTIONS (3)
  - CEREBRAL HAEMORRHAGE [None]
  - COMA [None]
  - UNRESPONSIVE TO STIMULI [None]
